FAERS Safety Report 17052377 (Version 1)
Quarter: 2019Q4

REPORT INFORMATION
  Report Type: Spontaneous
  Country: US (occurrence: US)
  Receive Date: 20191119
  Receipt Date: 20191119
  Transmission Date: 20200122
  Serious: Yes (Disabling, Other)
  Sender: FDA-Public Use
  Company Number: None

PATIENT
  Age: 58 Year
  Sex: Male
  Weight: 81.9 kg

DRUGS (6)
  1. VITAMINS [Concomitant]
     Active Substance: VITAMINS
  2. ZANTAC 150 (RANITIDINE HYDROCHLORIDE) [Suspect]
     Active Substance: RANITIDINE HYDROCHLORIDE
     Indication: GASTROOESOPHAGEAL REFLUX DISEASE
     Dosage: ?          QUANTITY:1 TABLET(S);?
     Route: 048
     Dates: start: 20170306, end: 20191025
  3. LOVASTATIN. [Concomitant]
     Active Substance: LOVASTATIN
  4. FISH OIL [Concomitant]
     Active Substance: FISH OIL
  5. TAMSULOSIN [Concomitant]
     Active Substance: TAMSULOSIN
  6. COQ10 [Concomitant]
     Active Substance: UBIDECARENONE

REACTIONS (3)
  - Neoplasm malignant [None]
  - Neuropathy peripheral [None]
  - Hypergammaglobulinaemia benign monoclonal [None]

NARRATIVE: CASE EVENT DATE: 20180528
